FAERS Safety Report 5026530-X (Version None)
Quarter: 2006Q2

REPORT INFORMATION
  Report Type: 
  Country: None (occurrence: None)
  Receive Date: 20060613
  Receipt Date: 20060613
  Transmission Date: 20061013
  Serious: No
  Sender: FDA-Public Use
  Company Number: None

PATIENT
  Sex: Female

DRUGS (2)
  1. GABAPENTIN [Suspect]
     Indication: ANXIETY DISORDER
     Dates: start: 20050209, end: 20060608
  2. GABAPENTIN [Suspect]
     Indication: BIPOLAR DISORDER
     Dates: start: 20050209, end: 20060608

REACTIONS (2)
  - ANXIETY [None]
  - DISEASE RECURRENCE [None]
